FAERS Safety Report 7391147-9 (Version None)
Quarter: 2011Q1

REPORT INFORMATION
  Report Type: 
  Country: None (occurrence: None)
  Receive Date: 20110324
  Receipt Date: 20110310
  Transmission Date: 20110831
  Serious: Yes (Other)
  Sender: FDA-Public Use
  Company Number: 011249

PATIENT
  Sex: Female
  Weight: 128.6 kg

DRUGS (20)
  1. NEURONTIN [Concomitant]
  2. ASPIRIN [Concomitant]
  3. BUMEX [Concomitant]
  4. CERTOLIZUMAB PEGOL [Suspect]
     Indication: RHEUMATOID ARTHRITIS
     Dosage: (200 MG 1X/2 WEEKS SUBCUTANEOUS)
     Route: 058
     Dates: start: 20090728, end: 20100326
  5. HYZAAR /01284801/ [Concomitant]
  6. RYTHMOL [Concomitant]
  7. SPIRIVA [Concomitant]
  8. DAILY MULTIVITAMIN [Concomitant]
  9. CRESTOR [Concomitant]
  10. DEPO-PROVERA [Concomitant]
  11. ALLEGRA [Concomitant]
  12. HYDROCODONE [Concomitant]
  13. FISH OIL [Concomitant]
  14. CALCIUM [Concomitant]
  15. NIACIN [Concomitant]
  16. ANTIPYRINE W/BENZOCAINE /00999201/ [Concomitant]
  17. ACIPHEX [Concomitant]
  18. NYSTATIN [Concomitant]
  19. DIAZEPAM [Concomitant]
  20. ACTRAPID INSULIN NOVO [Concomitant]

REACTIONS (3)
  - ASTHMA [None]
  - BRONCHITIS [None]
  - SINUSITIS [None]
